FAERS Safety Report 9242094 (Version 2)
Quarter: 2013Q2

REPORT INFORMATION
  Report Type: Spontaneous
  Country: US (occurrence: US)
  Receive Date: 20130419
  Receipt Date: 20130503
  Transmission Date: 20140414
  Serious: No
  Sender: FDA-Public Use
  Company Number: US-PFIZER INC-2013119714

PATIENT
  Age: 28 Year
  Sex: Male
  Weight: 95.24 kg

DRUGS (1)
  1. VIAGRA [Suspect]
     Indication: ERECTILE DYSFUNCTION
     Dosage: UNK, 1X/DAY
     Route: 048
     Dates: start: 201303, end: 201303

REACTIONS (1)
  - Drug ineffective [Unknown]
